FAERS Safety Report 20963613 (Version 2)
Quarter: 2022Q2

REPORT INFORMATION
  Report Type: Spontaneous
  Country: US (occurrence: US)
  Receive Date: 20220615
  Receipt Date: 20220616
  Transmission Date: 20220721
  Serious: No
  Sender: FDA-Public Use
  Company Number: US-PFIZER INC-202200815715

PATIENT
  Age: 23 Year
  Sex: Female

DRUGS (6)
  1. LORAZEPAM [Suspect]
     Active Substance: LORAZEPAM
     Indication: Generalised tonic-clonic seizure
     Dosage: 2 MG
     Route: 042
  2. LORAZEPAM [Suspect]
     Active Substance: LORAZEPAM
     Dosage: 4 MG
     Route: 042
  3. PHENOBARBITAL [Suspect]
     Active Substance: PHENOBARBITAL
     Indication: Generalised tonic-clonic seizure
     Dosage: 500 MG
     Route: 042
  4. CHARCOAL [Concomitant]
     Active Substance: ACTIVATED CHARCOAL
     Indication: Overdose
     Dosage: 50 G
  5. SUCCINYLCHOLINE CHLORIDE [Concomitant]
     Active Substance: SUCCINYLCHOLINE CHLORIDE
     Dosage: UNK
  6. ETOMIDATE [Concomitant]
     Active Substance: ETOMIDATE
     Dosage: UNK

REACTIONS (1)
  - Drug ineffective [Unknown]
